FAERS Safety Report 9210920 (Version 1)
Quarter: 2013Q2

REPORT INFORMATION
  Report Type: Spontaneous
  Country: US (occurrence: US)
  Receive Date: 20130404
  Receipt Date: 20130404
  Transmission Date: 20140414
  Serious: Yes (Disabling)
  Sender: FDA-Public Use
  Company Number: CHPA2013US005562

PATIENT
  Age: 52 Year
  Sex: Female

DRUGS (3)
  1. MYOFLEX ANALGESIC CREME [Suspect]
     Indication: MYALGIA
     Dosage: UNK, BID PRN
     Route: 061
     Dates: start: 1983
  2. MYOFLEX ANALGESIC CREME [Suspect]
     Indication: MUSCLE SPASMS
  3. ANALGESICS [Concomitant]
     Dosage: UNK, BID PRN
     Route: 061

REACTIONS (3)
  - Blindness [Not Recovered/Not Resolved]
  - Multiple sclerosis [Unknown]
  - Off label use [Unknown]
